FAERS Safety Report 25413385 (Version 1)
Quarter: 2025Q2

REPORT INFORMATION
  Report Type: Spontaneous
  Country: CN (occurrence: CN)
  Receive Date: 20250609
  Receipt Date: 20250609
  Transmission Date: 20250717
  Serious: Yes (Hospitalization)
  Sender: BAYER HEALTHCARE PHARMACEUTICALS INC.
  Company Number: CN-BAYER-2025A075559

PATIENT
  Age: 88 Year
  Sex: Female

DRUGS (2)
  1. GLUCOBAY [Interacting]
     Active Substance: ACARBOSE
     Indication: Type 2 diabetes mellitus
     Dosage: 50 MG, TID
     Route: 048
     Dates: start: 20250428, end: 20250430
  2. INSULIN ASPART [Interacting]
     Active Substance: INSULIN ASPART
     Indication: Type 2 diabetes mellitus
     Dosage: 12 U, BID
     Route: 058
     Dates: start: 20250428, end: 20250430

REACTIONS (9)
  - Hypoglycaemic coma [Recovering/Resolving]
  - Loss of consciousness [None]
  - Unresponsive to stimuli [None]
  - Depressed mood [None]
  - Pupillary reflex impaired [None]
  - Physical examination abnormal [None]
  - Vomiting [None]
  - Heart rate increased [None]
  - Respiratory rate increased [None]

NARRATIVE: CASE EVENT DATE: 20250430
